FAERS Safety Report 5664121-8 (Version None)
Quarter: 2008Q1

REPORT INFORMATION
  Report Type: 
  Country: None (occurrence: None)
  Receive Date: 20080314
  Receipt Date: 20080305
  Transmission Date: 20080703
  Serious: Yes (Life-Threatening, Hospitalization, Other)
  Sender: FDA-Public Use
  Company Number: US-ROCHE-541546

PATIENT
  Age: 55 Year
  Sex: Male
  Weight: 90.6 kg

DRUGS (5)
  1. CELLCEPT [Suspect]
     Indication: PROPHYLAXIS AGAINST GRAFT VERSUS HOST DISEASE
     Route: 048
     Dates: start: 20061031
  2. PROGRAF [Concomitant]
     Route: 048
     Dates: start: 20061027
  3. VFEND [Concomitant]
     Route: 048
     Dates: start: 20070101
  4. ZOVIRAX [Concomitant]
     Route: 048
     Dates: start: 20061026
  5. DELTASONE [Concomitant]
     Route: 048
     Dates: start: 20070101

REACTIONS (3)
  - INTESTINAL INFARCTION [None]
  - PULMONARY EMBOLISM [None]
  - WOUND DEHISCENCE [None]
